FAERS Safety Report 10955628 (Version 1)
Quarter: 2015Q1

REPORT INFORMATION
  Report Type: Spontaneous
  Country: DE (occurrence: DE)
  Receive Date: 20150326
  Receipt Date: 20150326
  Transmission Date: 20150721
  Serious: Yes (Death, Life-Threatening, Congenital Anomaly, Other)
  Sender: FDA-Public Use
  Company Number: DE-AUROBINDO-AUR-APL-2015-02532

PATIENT
  Age: 1 Day
  Sex: Male
  Weight: 2.91 kg

DRUGS (3)
  1. FOLSAEURE [Concomitant]
     Active Substance: FOLIC ACID
     Indication: PROPHYLAXIS OF NEURAL TUBE DEFECT
     Dosage: UNK
     Route: 064
  2. YASMIN [Concomitant]
     Active Substance: DROSPIRENONE\ETHINYL ESTRADIOL
     Indication: ORAL CONTRACEPTION
     Dosage: 3 MG, ONCE A DAY
     Route: 064
  3. LAMOTRIGINE. [Suspect]
     Active Substance: LAMOTRIGINE
     Indication: EPILEPSY
     Dosage: 300 MG, DAILY (100-0-200 MG/D)
     Route: 064
     Dates: start: 20131224, end: 20140911

REACTIONS (12)
  - Death neonatal [Fatal]
  - Ventricular septal defect [Unknown]
  - Hypercapnia [Unknown]
  - Neonatal hypotension [Unknown]
  - Anomalous pulmonary venous connection [Fatal]
  - Neonatal tachycardia [Unknown]
  - Anuria [Unknown]
  - Double outlet right ventricle [Fatal]
  - Lactic acidosis [Unknown]
  - Cyanosis [Unknown]
  - Foetal exposure during pregnancy [Unknown]
  - Atrial septal defect [Fatal]

NARRATIVE: CASE EVENT DATE: 20140911
